FAERS Safety Report 10146241 (Version 1)
Quarter: 2014Q2

REPORT INFORMATION
  Report Type: Spontaneous
  Country: US (occurrence: US)
  Receive Date: 20140501
  Receipt Date: 20140501
  Transmission Date: 20141212
  Serious: Yes (Other)
  Sender: FDA-Public Use
  Company Number: US-ELI_LILLY_AND_COMPANY-US201404006737

PATIENT
  Age: 77 Year
  Sex: Male

DRUGS (3)
  1. HUMULIN NPH [Suspect]
     Indication: TYPE 2 DIABETES MELLITUS
     Dosage: 20 U, QD
     Route: 065
     Dates: start: 2011
  2. HUMULIN NPH [Suspect]
     Dosage: 20 U, QD
     Route: 065
  3. GLIPIZIDE [Concomitant]
     Dosage: UNK, QD

REACTIONS (1)
  - Mesothelioma malignant [Unknown]
